FAERS Safety Report 13278082 (Version 13)
Quarter: 2021Q4

REPORT INFORMATION
  Report Type: Spontaneous
  Country: US (occurrence: US)
  Receive Date: 20170228
  Receipt Date: 20211129
  Transmission Date: 20220303
  Serious: Yes (Other)
  Sender: FDA-Public Use
  Company Number: US-PFIZER INC-2017083587

PATIENT
  Age: 49 Year
  Sex: Female
  Weight: 50.794 kg

DRUGS (6)
  1. LYRICA [Suspect]
     Active Substance: PREGABALIN
     Indication: Arthralgia
     Dosage: 50 MG
  2. LYRICA [Suspect]
     Active Substance: PREGABALIN
     Indication: Musculoskeletal stiffness
     Dosage: 75 MG, 2X/DAY (FOR 30 DAYS)/(TWICE A DAY)
     Route: 048
  3. LYRICA [Suspect]
     Active Substance: PREGABALIN
     Indication: Paraesthesia
     Dosage: 75 MG, 2X/DAY
     Route: 048
  4. LYRICA [Suspect]
     Active Substance: PREGABALIN
     Indication: Cervical radiculopathy
  5. LYRICA [Suspect]
     Active Substance: PREGABALIN
     Indication: Pain
  6. LYRICA [Suspect]
     Active Substance: PREGABALIN
     Indication: Neuralgia

REACTIONS (2)
  - COVID-19 [Unknown]
  - Therapeutic product effect incomplete [Unknown]
